FAERS Safety Report 8779388 (Version 1)
Quarter: 2012Q4

REPORT INFORMATION
  Report Type: 
  Country: DE (occurrence: DE)
  Receive Date: 20120912
  Receipt Date: 20120912
  Transmission Date: 20130627
  Serious: Yes (Other)
  Sender: FDA-Public Use
  Company Number: DE-ASTELLAS-2012EU006579

PATIENT
  Sex: Male

DRUGS (1)
  1. MYCAMINE [Suspect]
     Dosage: 100 mg, Unknown/D
     Route: 065

REACTIONS (1)
  - Skin exfoliation [Unknown]
